FAERS Safety Report 16256140 (Version 1)
Quarter: 2019Q2

REPORT INFORMATION
  Report Type: Spontaneous
  Country: US (occurrence: US)
  Receive Date: 20190430
  Receipt Date: 20190430
  Transmission Date: 20190711
  Serious: No
  Sender: FDA-Public Use
  Company Number: US-BAYER-2019-085731

PATIENT
  Sex: Female

DRUGS (2)
  1. ALKA-SELTZER ORIGINAL [Suspect]
     Active Substance: ANHYDROUS CITRIC ACID\ASPIRIN\SODIUM BICARBONATE
     Indication: ARTHRITIS
     Dosage: UNK, UNK
     Route: 048
  2. ALEVE [Suspect]
     Active Substance: NAPROXEN SODIUM
     Dosage: UNK, UNK
     Route: 048

REACTIONS (2)
  - Therapeutic product effect incomplete [Unknown]
  - Drug effective for unapproved indication [Unknown]
